FAERS Safety Report 4513510-3 (Version None)
Quarter: 2004Q4

REPORT INFORMATION
  Report Type: 
  Country: None (occurrence: None)
  Receive Date: 20041124
  Receipt Date: 20041115
  Transmission Date: 20050328
  Serious: Yes (Death, Hospitalization)
  Sender: FDA-Public Use
  Company Number: D01200402600

PATIENT
  Age: 75 Year
  Sex: Female

DRUGS (6)
  1. OXALIPLATIN - SOLUTION - 85 MG/M2 [Suspect]
     Dosage: 1 MG QD, ORAL
     Route: 042
     Dates: start: 20040607, end: 20040607
  2. FLUOROURACIL [Suspect]
     Dosage: 200 MG/M2 AS 2 HOUR INFUSION ON D1-D2 Q2W
     Route: 042
     Dates: start: 20040607, end: 20040608
  3. (SR57746 OR PLACEBO) CAPSULE - 1 MG [Suspect]
     Indication: COLORECTAL CANCER METASTATIC
     Dosage: 1 MG QD
     Dates: start: 20040323, end: 20040625
  4. (SR57746 OR PLACEBO) CAPSULE - 1 MG [Suspect]
     Indication: NEUROTOXICITY
     Dosage: 1 MG QD
     Dates: start: 20040323, end: 20040625
  5. (SR57746 OR PLACEBO) CAPSULE - 1 MG [Suspect]
     Indication: PROPHYLAXIS
     Dosage: 1 MG QD
     Dates: start: 20040323, end: 20040625
  6. LEUCOVORIN CALCIUM [Suspect]
     Dates: start: 20040607, end: 20040608

REACTIONS (9)
  - ANAEMIA [None]
  - BRONCHOPNEUMONIA [None]
  - COLORECTAL CANCER METASTATIC [None]
  - CONDITION AGGRAVATED [None]
  - COUGH [None]
  - GENERAL PHYSICAL HEALTH DETERIORATION [None]
  - HYPOALBUMINAEMIA [None]
  - LUNG CONSOLIDATION [None]
  - NEUTROPENIC INFECTION [None]
